FAERS Safety Report 5760475-2 (Version None)
Quarter: 2008Q2

REPORT INFORMATION
  Report Type: 
  Country: None (occurrence: None)
  Receive Date: 20080605
  Receipt Date: 20080527
  Transmission Date: 20081010
  Serious: Yes (Other)
  Sender: FDA-Public Use
  Company Number: BR-PFIZER INC-2008045866

PATIENT
  Sex: Female
  Weight: 70 kg

DRUGS (6)
  1. CELEBRA [Suspect]
     Indication: TENDON PAIN
     Route: 048
     Dates: start: 20080519, end: 20080521
  2. FLUOXETINE HCL [Concomitant]
     Route: 065
  3. AMITRIPTYLINE HCL [Concomitant]
     Route: 065
  4. DIAZEPAM [Concomitant]
     Route: 065
  5. RIVOTRIL [Concomitant]
     Route: 065
  6. CIMETIDINE [Concomitant]
     Route: 065

REACTIONS (9)
  - ABDOMINAL PAIN UPPER [None]
  - ASTHMA [None]
  - BLOOD PRESSURE INCREASED [None]
  - GASTROOESOPHAGEAL REFLUX DISEASE [None]
  - MUSCULAR WEAKNESS [None]
  - PAIN IN EXTREMITY [None]
  - POLYMENORRHOEA [None]
  - VAGINAL DISCHARGE [None]
  - VOMITING [None]
